FAERS Safety Report 17968724 (Version 8)
Quarter: 2021Q3

REPORT INFORMATION
  Report Type: Spontaneous
  Country: US (occurrence: US)
  Receive Date: 20200701
  Receipt Date: 20210820
  Transmission Date: 20211014
  Serious: No
  Sender: FDA-Public Use
  Company Number: US-PFIZER INC-2019082292

PATIENT
  Age: 89 Year
  Sex: Female
  Weight: 53.52 kg

DRUGS (2)
  1. PREMARIN [Suspect]
     Active Substance: ESTROGENS, CONJUGATED
     Dosage: UNK, CYCLIC (DAILY FOR 3 WEEKS, THEN ONE WEEK OFF)
     Route: 067
  2. PREMARIN [Suspect]
     Active Substance: ESTROGENS, CONJUGATED
     Dosage: UNK, CYCLIC (DAILY FOR 3 WEEKS, THEN ONE WEEK OFF)
     Route: 067

REACTIONS (6)
  - Vulvovaginal dryness [Unknown]
  - Intentional product misuse [Unknown]
  - Vulvovaginal pain [Unknown]
  - Expired product administered [Unknown]
  - Drug ineffective [Unknown]
  - Hypoacusis [Unknown]

NARRATIVE: CASE EVENT DATE: 202005
